FAERS Safety Report 15652396 (Version 1)
Quarter: 2018Q4

REPORT INFORMATION
  Report Type: Spontaneous
  Country: US (occurrence: US)
  Receive Date: 20181123
  Receipt Date: 20181123
  Transmission Date: 20190205
  Serious: No
  Sender: FDA-Public Use
  Company Number: US-FOUNDATIONCONSUMERHC-2018-US-014478

PATIENT
  Age: 34 Year
  Sex: Female
  Weight: 72.58 kg

DRUGS (2)
  1. NUVARING [Concomitant]
     Active Substance: ETHINYL ESTRADIOL\ETONOGESTREL
     Dosage: ^OFF AND ON^
  2. TAKE ACTION [Suspect]
     Active Substance: LEVONORGESTREL
     Indication: POST COITAL CONTRACEPTION
     Dosage: 1.5 MG
     Route: 048
     Dates: start: 20180814, end: 20180814

REACTIONS (6)
  - Dysmenorrhoea [Not Recovered/Not Resolved]
  - Muscle spasms [Recovered/Resolved]
  - Breast discomfort [Not Recovered/Not Resolved]
  - Abdominal pain lower [Recovered/Resolved]
  - Dizziness [Not Recovered/Not Resolved]
  - Nausea [Recovered/Resolved]

NARRATIVE: CASE EVENT DATE: 20180815
